FAERS Safety Report 19494716 (Version 2)
Quarter: 2022Q1

REPORT INFORMATION
  Report Type: Report from Study
  Country: US (occurrence: US)
  Receive Date: 20210705
  Receipt Date: 20220308
  Transmission Date: 20220424
  Serious: No
  Sender: FDA-Public Use
  Company Number: US-NOVARTISTESTPH-NVSC2021US143034

PATIENT
  Sex: Female

DRUGS (2)
  1. GLATOPA [Suspect]
     Active Substance: GLATIRAMER ACETATE
     Indication: Multiple sclerosis
     Dosage: 40 MG, QOD
     Route: 058
     Dates: start: 20210621
  2. GLATOPA [Suspect]
     Active Substance: GLATIRAMER ACETATE
     Dosage: 40 UNK, MILLIGRAM PER MILLILITRE
     Route: 065

REACTIONS (4)
  - Gait inability [Unknown]
  - Mobility decreased [Unknown]
  - Product dose omission issue [Unknown]
  - Pain [Unknown]
